FAERS Safety Report 10598469 (Version 1)
Quarter: 2014Q4

REPORT INFORMATION
  Report Type: Spontaneous
  Country: IT (occurrence: IT)
  Receive Date: 20141121
  Receipt Date: 20141121
  Transmission Date: 20150529
  Serious: Yes (Other)
  Sender: FDA-Public Use
  Company Number: IT-009507513-1411ITA007243

PATIENT
  Age: 65 Year
  Sex: Female
  Weight: 70 kg

DRUGS (6)
  1. PEGINTRON [Suspect]
     Active Substance: PEGINTERFERON ALFA-2B
     Indication: CHRONIC HEPATITIS C
     Dosage: 120 MICROGRAM, QW
     Route: 058
     Dates: start: 20131011, end: 20140103
  2. VICTRELIS [Suspect]
     Active Substance: BOCEPREVIR
     Indication: CHRONIC HEPATITIS C
     Dosage: TOTAL DAILY DOSE 2400MG, QD
     Route: 048
     Dates: start: 20131108, end: 20140103
  3. REBETOL [Suspect]
     Active Substance: RIBAVIRIN
     Indication: CHRONIC HEPATITIS C
     Dosage: TOTAL DAILY DOSE 1000MG, QD
     Route: 048
     Dates: start: 20131011, end: 20131203
  4. LUCEN (ESOMEPRAZOLE SODIUM) [Concomitant]
     Dosage: 1 DF, UNK
  5. REBETOL [Suspect]
     Active Substance: RIBAVIRIN
     Dosage: 800 MG, QD, 2 CAPSULE + 2 CAPSULE, DAILY
     Route: 048
     Dates: start: 20131203, end: 20140103
  6. URSILON [Concomitant]
     Dosage: 1 DF, UNK

REACTIONS (5)
  - Anaemia [Recovering/Resolving]
  - Vomiting [Unknown]
  - Decreased appetite [Unknown]
  - Asthenia [Recovering/Resolving]
  - Nausea [Recovering/Resolving]

NARRATIVE: CASE EVENT DATE: 20131203
